FAERS Safety Report 15459869 (Version 1)
Quarter: 2018Q3

REPORT INFORMATION
  Report Type: Spontaneous
  Country: US (occurrence: US)
  Receive Date: 20180928
  Receipt Date: 20180928
  Transmission Date: 20181010
  Serious: No
  Sender: FDA-Public Use
  Company Number: None

PATIENT
  Age: 56 Year
  Sex: Male

DRUGS (1)
  1. CAPECITABINE. [Suspect]
     Active Substance: CAPECITABINE
     Indication: PANCREATIC CARCINOMA
     Dosage: OTHER ROUTE:21 ON 7 OFF?
     Dates: start: 20180830

REACTIONS (2)
  - Irritability [None]
  - Impatience [None]

NARRATIVE: CASE EVENT DATE: 20180925
